FAERS Safety Report 5181086-6 (Version None)
Quarter: 2006Q4

REPORT INFORMATION
  Report Type: 
  Country: None (occurrence: None)
  Receive Date: 20061220
  Receipt Date: 20061113
  Transmission Date: 20070319
  Serious: Yes (Hospitalization)
  Sender: FDA-Public Use
  Company Number: PHBS2006JP17820

PATIENT
  Age: 75 Year
  Sex: Male

DRUGS (2)
  1. DIOVAN [Suspect]
     Indication: HYPERTENSION
     Dosage: 80 MG/DAY
     Route: 048
     Dates: end: 20061111
  2. NORVASC [Concomitant]
     Dosage: UNK, UNK
     Dates: end: 20061111

REACTIONS (1)
  - HYPOGLYCAEMIA [None]
